FAERS Safety Report 8767529 (Version 6)
Quarter: 2014Q1

REPORT INFORMATION
  Report Type: Report from Study
  Country: BR (occurrence: BR)
  Receive Date: 20120904
  Receipt Date: 20140304
  Transmission Date: 20141002
  Serious: Yes (Hospitalization, Other)
  Sender: FDA-Public Use
  Company Number: BR-ACTELION-A-CH2012-70560

PATIENT
  Age: 36 Year
  Sex: Female

DRUGS (8)
  1. PLACEBO [Suspect]
     Indication: PULMONARY ARTERIAL HYPERTENSION
     Dosage: 125 MG, BID
     Route: 048
     Dates: start: 20091105, end: 20120823
  2. PLACEBO [Suspect]
     Dosage: 62.5 MG, BID
     Route: 048
     Dates: start: 20091007, end: 20091105
  3. SILDENAFIL [Concomitant]
     Dosage: 20 MG, TID
     Dates: start: 20100916
  4. WARFARIN [Concomitant]
     Dosage: UNK
     Dates: start: 20100913, end: 20120823
  5. CLOROQUINA [Concomitant]
     Dosage: UNK
     Dates: start: 20100913, end: 20120823
  6. UREA [Concomitant]
     Dosage: UNK
     Dates: start: 201205
  7. HYDROXYCHLOROQUINE [Concomitant]
     Dosage: UNK
     Dates: start: 20120911
  8. OXYGEN [Concomitant]
     Dosage: UNK
     Dates: start: 200811

REACTIONS (5)
  - Pregnancy [Recovered/Resolved]
  - Oligohydramnios [Recovered/Resolved]
  - Caesarean section [Recovered/Resolved]
  - Hypotension [Recovered/Resolved]
  - Premature baby [Unknown]
